FAERS Safety Report 6724937-3 (Version None)
Quarter: 2010Q2

REPORT INFORMATION
  Report Type: 
  Country: None (occurrence: None)
  Receive Date: 20100514
  Receipt Date: 20100506
  Transmission Date: 20101027
  Serious: Yes (Hospitalization)
  Sender: FDA-Public Use
  Company Number: US-BIOGENIDEC-2010BI015461

PATIENT
  Age: 65 Year
  Sex: Female

DRUGS (3)
  1. AVONEX [Suspect]
     Indication: MULTIPLE SCLEROSIS
     Route: 030
     Dates: start: 20090501
  2. AVONEX [Suspect]
     Route: 030
     Dates: start: 20070601
  3. AVONEX [Suspect]
     Route: 030
     Dates: start: 20080601

REACTIONS (3)
  - ANGIOGRAM [None]
  - SEPSIS [None]
  - URINARY TRACT INFECTION [None]
